FAERS Safety Report 7318339-9 (Version None)
Quarter: 2011Q1

REPORT INFORMATION
  Report Type: 
  Country: None (occurrence: None)
  Receive Date: 20110218
  Receipt Date: 20110218
  Transmission Date: 20110831
  Serious: Yes (Hospitalization)
  Sender: FDA-Public Use
  Company Number: None

PATIENT
  Age: 56 Year
  Sex: Male
  Weight: 154 kg

DRUGS (3)
  1. ALEVE [Suspect]
     Indication: OSTEOARTHRITIS
     Dosage: 1 TABLET BID PO CHRONIC
     Route: 048
  2. MOBIC [Suspect]
     Indication: OSTEOARTHRITIS
     Dosage: 15 MG PO DAILY CHRONIC
     Route: 048
  3. ASPIRIN [Suspect]
     Indication: OSTEOARTHRITIS
     Dosage: 81 MG DAILY PO CHRONIC
     Route: 048

REACTIONS (3)
  - GASTRITIS [None]
  - DUODENAL ULCER [None]
  - EROSIVE OESOPHAGITIS [None]
